FAERS Safety Report 22279647 (Version 1)
Quarter: 2023Q2

REPORT INFORMATION
  Report Type: Report from Study
  Country: IN (occurrence: IN)
  Receive Date: 20230503
  Receipt Date: 20230503
  Transmission Date: 20230721
  Serious: Yes (Death)
  Sender: FDA-Public Use
  Company Number: IN-002147023-NVSC2023IN101342

PATIENT
  Age: 54 Year
  Sex: Female

DRUGS (1)
  1. ELTROMBOPAG OLAMINE [Suspect]
     Active Substance: ELTROMBOPAG OLAMINE
     Indication: Aplastic anaemia
     Dosage: 50 MG, QD
     Route: 065
     Dates: start: 20221101

REACTIONS (1)
  - Death [Fatal]

NARRATIVE: CASE EVENT DATE: 20230306
